FAERS Safety Report 22028592 (Version 1)
Quarter: 2023Q1

REPORT INFORMATION
  Report Type: Report from Study
  Country: US (occurrence: US)
  Receive Date: 20230223
  Receipt Date: 20230223
  Transmission Date: 20230417
  Serious: Yes (Hospitalization)
  Sender: FDA-Public Use
  Company Number: US-BoehringerIngelheim-2022-BI-205939

PATIENT
  Age: 83 Year
  Sex: Female

DRUGS (4)
  1. OFEV [Suspect]
     Active Substance: NINTEDANIB
     Indication: Idiopathic pulmonary fibrosis
     Route: 048
     Dates: start: 20221111
  2. OFEV [Suspect]
     Active Substance: NINTEDANIB
     Indication: Pulmonary hypertension
  3. OFEV [Suspect]
     Active Substance: NINTEDANIB
     Indication: Hypoxia
  4. OFEV [Suspect]
     Active Substance: NINTEDANIB
     Indication: Interstitial lung disease

REACTIONS (9)
  - Dehydration [Unknown]
  - Abdominal discomfort [Not Recovered/Not Resolved]
  - Diarrhoea [Not Recovered/Not Resolved]
  - Asthenia [Not Recovered/Not Resolved]
  - Taste disorder [Not Recovered/Not Resolved]
  - Nausea [Unknown]
  - Vomiting [Unknown]
  - Abdominal pain upper [Unknown]
  - Intentional product use issue [Not Recovered/Not Resolved]

NARRATIVE: CASE EVENT DATE: 20221122
